FAERS Safety Report 19661241 (Version 1)
Quarter: 2021Q3

REPORT INFORMATION
  Report Type: Spontaneous
  Country: AU (occurrence: AU)
  Receive Date: 20210805
  Receipt Date: 20210805
  Transmission Date: 20211014
  Serious: Yes (Hospitalization, Other)
  Sender: FDA-Public Use
  Company Number: AU-MYLANLABS-2021M1047480

PATIENT
  Sex: Female

DRUGS (5)
  1. LITHIUM. [Concomitant]
     Active Substance: LITHIUM
     Dosage: 1000 MILLIGRAM, QD
  2. CLOZARIL [Suspect]
     Active Substance: CLOZAPINE
     Indication: SCHIZOPHRENIA
     Dosage: 150 MILLIGRAM
     Route: 048
     Dates: start: 20210701
  3. METFORMIN [Concomitant]
     Active Substance: METFORMIN HYDROCHLORIDE
     Indication: WEIGHT INCREASED
     Dosage: 1 GRAM, QD
  4. LURASIDONE [Concomitant]
     Active Substance: LURASIDONE
     Dosage: 160 MILLIGRAM, QD
  5. OLANZAPINE. [Concomitant]
     Active Substance: OLANZAPINE
     Dosage: 150 MILLIGRAM

REACTIONS (6)
  - Tachycardia [Unknown]
  - Orthostatic hypotension [Unknown]
  - Mental impairment [Unknown]
  - Cough [Unknown]
  - Upper respiratory tract infection [Unknown]
  - Sedation [Unknown]
